FAERS Safety Report 25612326 (Version 2)
Quarter: 2025Q3

REPORT INFORMATION
  Report Type: Report from Study
  Country: US (occurrence: US)
  Receive Date: 20250728
  Receipt Date: 20250923
  Transmission Date: 20251020
  Serious: No
  Sender: SANOFI AVENTIS
  Company Number: US-SA-2025SA214196

PATIENT
  Age: 28 Year
  Sex: Female

DRUGS (2)
  1. DUPILUMAB [Suspect]
     Active Substance: DUPILUMAB
     Indication: Chronic spontaneous urticaria
     Route: 058
     Dates: start: 20250520, end: 20250520
  2. DUPILUMAB [Suspect]
     Active Substance: DUPILUMAB
     Dosage: 300 MG, QOW
     Route: 058
     Dates: start: 20250717

REACTIONS (2)
  - Injection site pain [Not Recovered/Not Resolved]
  - Product preparation error [Unknown]

NARRATIVE: CASE EVENT DATE: 20250520
